FAERS Safety Report 11921865 (Version 1)
Quarter: 2016Q1

REPORT INFORMATION
  Report Type: Spontaneous
  Country: US (occurrence: US)
  Receive Date: 20160115
  Receipt Date: 20160115
  Transmission Date: 20160526
  Serious: No
  Sender: FDA-Public Use
  Company Number: US-LUNDBECK-DKLU2006709

PATIENT
  Age: 46 Year
  Sex: Male

DRUGS (1)
  1. NORTHERA [Suspect]
     Active Substance: DROXIDOPA
     Indication: PRODUCT USED FOR UNKNOWN INDICATION
     Route: 065
     Dates: start: 20151031

REACTIONS (5)
  - Intentional underdose [Unknown]
  - Agitation [Unknown]
  - Abdominal discomfort [Unknown]
  - Headache [Unknown]
  - Somnolence [Unknown]

NARRATIVE: CASE EVENT DATE: 20151105
